FAERS Safety Report 4799047-5 (Version None)
Quarter: 2005Q4

REPORT INFORMATION
  Report Type: 
  Country: None (occurrence: None)
  Receive Date: 20051014
  Receipt Date: 20051011
  Transmission Date: 20060501
  Serious: Yes (Other)
  Sender: FDA-Public Use
  Company Number: CA-MERCK-0510CAN00091

PATIENT
  Age: 69 Year
  Sex: Female

DRUGS (3)
  1. FOSAMAX [Suspect]
     Route: 048
     Dates: start: 20020101
  2. CALCIUM (UNSPECIFIED) [Concomitant]
     Route: 065
  3. LEVOTHYROXINE SODIUM [Concomitant]
     Route: 065

REACTIONS (2)
  - BACK PAIN [None]
  - LUNG OPERATION [None]
